FAERS Safety Report 13600978 (Version 1)
Quarter: 2017Q2

REPORT INFORMATION
  Report Type: Spontaneous
  Country: AE (occurrence: AE)
  Receive Date: 20170601
  Receipt Date: 20170601
  Transmission Date: 20170830
  Serious: Yes (Other)
  Sender: FDA-Public Use
  Company Number: AE-ABBVIE-17K-166-1992835-00

PATIENT
  Age: 20 Year
  Sex: Male

DRUGS (2)
  1. HUMIRA [Suspect]
     Active Substance: ADALIMUMAB
     Indication: PSORIASIS
     Route: 058
     Dates: start: 201007
  2. ASPIRIN. [Concomitant]
     Active Substance: ASPIRIN
     Indication: TRANSIENT ISCHAEMIC ATTACK
     Route: 048
     Dates: start: 201604

REACTIONS (8)
  - Transient ischaemic attack [Recovered/Resolved]
  - Vision blurred [Unknown]
  - Hypoaesthesia oral [Unknown]
  - Vision blurred [Recovered/Resolved]
  - Transient ischaemic attack [Unknown]
  - Headache [Unknown]
  - Headache [Recovered/Resolved]
  - Hypoaesthesia [Unknown]

NARRATIVE: CASE EVENT DATE: 201605
